FAERS Safety Report 8534583-7 (Version None)
Quarter: 2012Q3

REPORT INFORMATION
  Report Type: 
  Country: None (occurrence: None)
  Receive Date: 20120724
  Receipt Date: 20120710
  Transmission Date: 20120928
  Serious: No
  Sender: FDA-Public Use
  Company Number: US-ASTRAZENECA-2012SE47898

PATIENT
  Age: 60 Year
  Sex: Male
  Weight: 81.6 kg

DRUGS (6)
  1. SYMBICORT [Suspect]
     Dosage: 80/4.5, 2 PUFF, AS NEEDED
     Route: 055
  2. LOSARTAN POTASSIUM [Concomitant]
  3. PROVENTIL [Suspect]
     Route: 065
  4. SYMBICORT [Suspect]
     Indication: ASTHMA
     Dosage: 80/4.5, 2 PUFF, TWICE A DAY
     Route: 055
  5. METFORMIN HYDROCHLORIDE [Concomitant]
  6. PLAVIX [Concomitant]

REACTIONS (2)
  - OFF LABEL USE [None]
  - MALAISE [None]
